FAERS Safety Report 7532597-7 (Version None)
Quarter: 2011Q2

REPORT INFORMATION
  Report Type: 
  Country: None (occurrence: None)
  Receive Date: 20110608
  Receipt Date: 20110603
  Transmission Date: 20111010
  Serious: Yes (Death)
  Sender: FDA-Public Use
  Company Number: PHHY2011MX31308

PATIENT
  Sex: Female

DRUGS (1)
  1. EXFORGE HCT [Suspect]
     Indication: HYPERTENSION
     Dosage: 1 DF (320 MG OF VALS, 10 MG OF AMLO AND 25 MG OF HYDR) PER DAY
     Dates: start: 20110301, end: 20110331

REACTIONS (4)
  - CARDIAC ARREST [None]
  - VOMITING [None]
  - RENAL FAILURE [None]
  - CARDIOVASCULAR DISORDER [None]
